FAERS Safety Report 23802733 (Version 1)
Quarter: 2024Q2

REPORT INFORMATION
  Report Type: Spontaneous
  Country: US (occurrence: US)
  Receive Date: 20240501
  Receipt Date: 20240501
  Transmission Date: 20240715
  Serious: No
  Sender: FDA-Public Use
  Company Number: US-SANDOZ-SDZ2024US044336

PATIENT
  Sex: Male

DRUGS (1)
  1. FOCALIN XR [Suspect]
     Active Substance: DEXMETHYLPHENIDATE HYDROCHLORIDE
     Indication: Attention deficit hyperactivity disorder
     Dosage: 15 MG, QD
     Route: 065
     Dates: start: 2022

REACTIONS (5)
  - Anxiety disorder [Unknown]
  - Dysphagia [Unknown]
  - Attention-seeking behaviour [Unknown]
  - Decreased appetite [Unknown]
  - Therapeutic response shortened [Unknown]
